FAERS Safety Report 25269202 (Version 2)
Quarter: 2025Q2

REPORT INFORMATION
  Report Type: Report from Study
  Country: US (occurrence: US)
  Receive Date: 20250505
  Receipt Date: 20250514
  Transmission Date: 20250716
  Serious: Yes (Other)
  Sender: NOVARTIS
  Company Number: US-002147023-NVSC2025US071691

PATIENT
  Age: 15 Year
  Sex: Male
  Weight: 73 kg

DRUGS (3)
  1. KISQALI [Suspect]
     Active Substance: RIBOCICLIB SUCCINATE
     Indication: Malignant glioma
     Dosage: 300 MG, QD FOR 21 DAYS, EVERY 28 DAYS
     Route: 048
     Dates: start: 20250308, end: 20250328
  2. KISQALI [Suspect]
     Active Substance: RIBOCICLIB SUCCINATE
     Dosage: 200 MG, QD (REDUCED DOSE)
     Route: 048
  3. EVEROLIMUS [Concomitant]
     Active Substance: EVEROLIMUS
     Indication: Malignant glioma
     Dosage: 2.5 MG, QD, OVER 28 DAYS CYCLE
     Route: 065
     Dates: start: 20250308, end: 20250402

REACTIONS (1)
  - Neutropenia [Recovered/Resolved]

NARRATIVE: CASE EVENT DATE: 20250402
